FAERS Safety Report 9270177 (Version 5)
Quarter: 2014Q1

REPORT INFORMATION
  Report Type: Spontaneous
  Country: JP (occurrence: JP)
  Receive Date: 20130503
  Receipt Date: 20140210
  Transmission Date: 20141002
  Serious: Yes (Hospitalization)
  Sender: FDA-Public Use
  Company Number: JP-GLAXOSMITHKLINE-B0835850A

PATIENT
  Age: 30 Year
  Sex: Female
  Weight: 53 kg

DRUGS (11)
  1. HYCAMTIN [Suspect]
     Indication: OVARIAN CANCER RECURRENT
     Route: 042
     Dates: start: 20120903, end: 20121026
  2. PENTCILLIN [Concomitant]
     Dosage: 4G PER DAY
     Route: 042
     Dates: start: 20120913, end: 20120917
  3. KYTRIL [Concomitant]
     Dosage: 3MG PER DAY
     Route: 042
     Dates: start: 20120903, end: 20121026
  4. PRIMPERAN [Concomitant]
     Indication: NAUSEA
     Dosage: 15MG PER DAY
     Route: 048
     Dates: start: 20120908, end: 20121015
  5. PRIMPERAN [Concomitant]
     Indication: NAUSEA
     Dosage: 10MG PER DAY
     Route: 042
     Dates: start: 20120911, end: 20120917
  6. ALOXI [Concomitant]
     Dosage: .75MG PER DAY
     Route: 042
     Dates: start: 20121022, end: 20121022
  7. EMEND [Concomitant]
     Dosage: 125MG PER DAY
     Route: 048
     Dates: start: 20121022, end: 20121022
  8. PRIMPERAN [Concomitant]
     Dosage: 15MG PER DAY
     Route: 048
     Dates: start: 20120920, end: 20121021
  9. PRIMPERAN [Concomitant]
     Dosage: 15MG PER DAY
     Route: 048
     Dates: start: 20121025, end: 20121105
  10. PRIMPERAN [Concomitant]
     Dosage: 10MG PER DAY
     Route: 042
     Dates: start: 20121030, end: 20121102
  11. EMEND [Concomitant]
     Dosage: 80MG PER DAY
     Route: 048
     Dates: start: 20121023, end: 20121026

REACTIONS (8)
  - Neutrophil count decreased [Recovered/Resolved]
  - Nausea [Recovered/Resolved]
  - Decreased appetite [Not Recovered/Not Resolved]
  - White blood cell count decreased [Recovered/Resolved]
  - Red blood cell count decreased [Recovering/Resolving]
  - Anaemia [Recovering/Resolving]
  - Platelet count decreased [Recovering/Resolving]
  - Malaise [Not Recovered/Not Resolved]
